FAERS Safety Report 16054559 (Version 1)
Quarter: 2019Q1

REPORT INFORMATION
  Report Type: Spontaneous
  Country: US (occurrence: US)
  Receive Date: 20190309
  Receipt Date: 20190309
  Transmission Date: 20190418
  Serious: No
  Sender: FDA-Public Use
  Company Number: US-JNJFOC-20190218553

PATIENT
  Age: 66 Year
  Sex: Female
  Weight: 54.43 kg

DRUGS (2)
  1. MENS ROGAINE EXTRA STRENGTH [Suspect]
     Active Substance: MINOXIDIL
     Indication: ALOPECIA
     Dosage: A LITTLE MORE THAN 1 ML, BOTTLE ONLY LASTS FOR 21 DAYS TWICE DAILY
     Route: 061
     Dates: start: 201901
  2. MENS ROGAINE EXTRA STRENGTH [Suspect]
     Active Substance: MINOXIDIL
     Route: 061

REACTIONS (4)
  - Off label use [Unknown]
  - Product use issue [Unknown]
  - Overdose [Unknown]
  - Seborrhoea [Unknown]
